FAERS Safety Report 8784472 (Version 2)
Quarter: 2012Q4

REPORT INFORMATION
  Report Type: 
  Country: FR (occurrence: FR)
  Receive Date: 20120913
  Receipt Date: 20121102
  Transmission Date: 20130627
  Serious: Yes (Other)
  Sender: FDA-Public Use
  Company Number: FR-AMGEN-FRASP2012057596

PATIENT
  Age: 66 Year
  Sex: Female
  Weight: 65 kg

DRUGS (4)
  1. OMEPRAZOLE [Concomitant]
     Dosage: 20 mg, 1x/day
     Route: 048
     Dates: start: 20120404
  2. ENBREL [Suspect]
     Indication: RHEUMATOID ARTHRITIS
     Dosage: 50 mg, weekly
     Route: 058
     Dates: end: 20120731
  3. METHOTREXATE SODIUM [Concomitant]
     Indication: RHEUMATOID ARTHRITIS
     Dosage: 12.5 mg, weekly
     Route: 048
     Dates: start: 2005
  4. BREXIN                             /00500404/ [Concomitant]
     Indication: RHEUMATOID ARTHRITIS
     Dosage: On demand, per courses of 5 days
     Route: 048
     Dates: start: 20120404

REACTIONS (3)
  - Gastrointestinal pain [Recovered/Resolved]
  - Diverticulum intestinal [Unknown]
  - Injection site pain [Unknown]
